FAERS Safety Report 24805573 (Version 4)
Quarter: 2025Q3

REPORT INFORMATION
  Report Type: Spontaneous
  Country: US (occurrence: US)
  Receive Date: 20250103
  Receipt Date: 20250821
  Transmission Date: 20251021
  Serious: Yes (Hospitalization, Other)
  Sender: MYLAN
  Company Number: US-MYLANLABS-2024M1115839

PATIENT
  Age: 77 Year
  Sex: Female
  Weight: 70.76 kg

DRUGS (140)
  1. CARDURA [Suspect]
     Active Substance: DOXAZOSIN MESYLATE
     Indication: Bladder dilatation
  2. CARDURA [Suspect]
     Active Substance: DOXAZOSIN MESYLATE
     Route: 065
  3. CARDURA [Suspect]
     Active Substance: DOXAZOSIN MESYLATE
     Route: 065
  4. CARDURA [Suspect]
     Active Substance: DOXAZOSIN MESYLATE
  5. TAMSULOSIN [Suspect]
     Active Substance: TAMSULOSIN
     Indication: Bladder obstruction
     Dosage: 0.4 MILLIGRAM, AM (EVERY MORNING)
     Dates: start: 20241205, end: 20241207
  6. TAMSULOSIN [Suspect]
     Active Substance: TAMSULOSIN
     Dosage: 0.4 MILLIGRAM, AM (EVERY MORNING)
     Route: 048
     Dates: start: 20241205, end: 20241207
  7. TAMSULOSIN [Suspect]
     Active Substance: TAMSULOSIN
     Dosage: 0.4 MILLIGRAM, AM (EVERY MORNING)
     Route: 048
     Dates: start: 20241205, end: 20241207
  8. TAMSULOSIN [Suspect]
     Active Substance: TAMSULOSIN
     Dosage: 0.4 MILLIGRAM, AM (EVERY MORNING)
     Dates: start: 20241205, end: 20241207
  9. TREPROSTINIL [Suspect]
     Active Substance: TREPROSTINIL
     Indication: Pulmonary arterial hypertension
     Dosage: 32 MICROGRAM, QID
  10. TREPROSTINIL [Suspect]
     Active Substance: TREPROSTINIL
     Dosage: 32 MICROGRAM, QID
  11. TREPROSTINIL [Suspect]
     Active Substance: TREPROSTINIL
     Dosage: 32 MICROGRAM, QID
     Route: 055
  12. TREPROSTINIL [Suspect]
     Active Substance: TREPROSTINIL
     Dosage: 32 MICROGRAM, QID
     Route: 055
  13. TREPROSTINIL [Suspect]
     Active Substance: TREPROSTINIL
  14. TREPROSTINIL [Suspect]
     Active Substance: TREPROSTINIL
  15. TREPROSTINIL [Suspect]
     Active Substance: TREPROSTINIL
     Route: 055
  16. TREPROSTINIL [Suspect]
     Active Substance: TREPROSTINIL
     Route: 055
  17. TYVASO DPI [Suspect]
     Active Substance: TREPROSTINIL
     Indication: Pulmonary arterial hypertension
     Dosage: 32 MICROGRAM, QID (FOUR TIME A DAY)
     Dates: start: 202311
  18. TYVASO DPI [Suspect]
     Active Substance: TREPROSTINIL
     Dosage: 32 MICROGRAM, QID (FOUR TIME A DAY)
     Route: 055
     Dates: start: 202311
  19. TYVASO DPI [Suspect]
     Active Substance: TREPROSTINIL
     Dosage: 32 MICROGRAM, QID (FOUR TIME A DAY)
     Route: 055
     Dates: start: 202311
  20. TYVASO DPI [Suspect]
     Active Substance: TREPROSTINIL
     Dosage: 32 MICROGRAM, QID (FOUR TIME A DAY)
     Dates: start: 202311
  21. TYVASO DPI [Suspect]
     Active Substance: TREPROSTINIL
     Indication: Pulmonary arterial hypertension
     Dosage: 16 MICROGRAM, QID
     Route: 065
     Dates: start: 202411
  22. TYVASO DPI [Suspect]
     Active Substance: TREPROSTINIL
     Dosage: 16 MICROGRAM, QID
     Dates: start: 202411
  23. TYVASO DPI [Suspect]
     Active Substance: TREPROSTINIL
     Dosage: 16 MICROGRAM, QID
     Dates: start: 202411
  24. TYVASO DPI [Suspect]
     Active Substance: TREPROSTINIL
     Dosage: 16 MICROGRAM, QID
     Route: 065
     Dates: start: 202411
  25. TYVASO DPI [Suspect]
     Active Substance: TREPROSTINIL
     Dosage: 16 MICROGRAM, QID
     Route: 065
     Dates: start: 2025
  26. TYVASO DPI [Suspect]
     Active Substance: TREPROSTINIL
     Dosage: 16 MICROGRAM, QID
     Dates: start: 2025
  27. TYVASO DPI [Suspect]
     Active Substance: TREPROSTINIL
     Dosage: 16 MICROGRAM, QID
     Dates: start: 2025
  28. TYVASO DPI [Suspect]
     Active Substance: TREPROSTINIL
     Dosage: 16 MICROGRAM, QID
     Route: 065
     Dates: start: 2025
  29. UPTRAVI [Suspect]
     Active Substance: SELEXIPAG
     Indication: Product used for unknown indication
     Dosage: UNK, QD
     Dates: start: 202306
  30. UPTRAVI [Suspect]
     Active Substance: SELEXIPAG
     Dosage: UNK, QD
     Route: 065
     Dates: start: 202306
  31. UPTRAVI [Suspect]
     Active Substance: SELEXIPAG
     Dosage: UNK, QD
     Route: 065
     Dates: start: 202306
  32. UPTRAVI [Suspect]
     Active Substance: SELEXIPAG
     Dosage: UNK, QD
     Dates: start: 202306
  33. CEPHALEXIN [Suspect]
     Active Substance: CEPHALEXIN
     Indication: Product used for unknown indication
  34. CEPHALEXIN [Suspect]
     Active Substance: CEPHALEXIN
     Route: 065
  35. CEPHALEXIN [Suspect]
     Active Substance: CEPHALEXIN
     Route: 065
  36. CEPHALEXIN [Suspect]
     Active Substance: CEPHALEXIN
  37. FLOMAX [Suspect]
     Active Substance: TAMSULOSIN HYDROCHLORIDE
     Indication: Product used for unknown indication
  38. FLOMAX [Suspect]
     Active Substance: TAMSULOSIN HYDROCHLORIDE
     Route: 065
  39. FLOMAX [Suspect]
     Active Substance: TAMSULOSIN HYDROCHLORIDE
     Route: 065
  40. FLOMAX [Suspect]
     Active Substance: TAMSULOSIN HYDROCHLORIDE
  41. ORENITRAM [Suspect]
     Active Substance: TREPROSTINIL
     Indication: Pulmonary arterial hypertension
  42. ORENITRAM [Suspect]
     Active Substance: TREPROSTINIL
  43. ORENITRAM [Suspect]
     Active Substance: TREPROSTINIL
     Route: 048
  44. ORENITRAM [Suspect]
     Active Substance: TREPROSTINIL
     Route: 048
  45. ORENITRAM [Suspect]
     Active Substance: TREPROSTINIL
     Dosage: 0.125 MILLIGRAM, TID, (THREE TIMES A DAY)
     Route: 048
     Dates: start: 202505, end: 202505
  46. ORENITRAM [Suspect]
     Active Substance: TREPROSTINIL
     Dosage: 0.125 MILLIGRAM, TID, (THREE TIMES A DAY)
     Route: 048
     Dates: start: 202505, end: 202505
  47. ORENITRAM [Suspect]
     Active Substance: TREPROSTINIL
     Dosage: 0.125 MILLIGRAM, TID, (THREE TIMES A DAY)
     Dates: start: 202505, end: 202505
  48. ORENITRAM [Suspect]
     Active Substance: TREPROSTINIL
     Dosage: 0.125 MILLIGRAM, TID, (THREE TIMES A DAY)
     Dates: start: 202505, end: 202505
  49. ORENITRAM [Suspect]
     Active Substance: TREPROSTINIL
     Dosage: 0.125 MILLIGRAM, BID, (TWO PILLS A DAY DOSE DECREASE)
     Route: 048
     Dates: start: 202505, end: 202505
  50. ORENITRAM [Suspect]
     Active Substance: TREPROSTINIL
     Dosage: 0.125 MILLIGRAM, BID, (TWO PILLS A DAY DOSE DECREASE)
     Route: 048
     Dates: start: 202505, end: 202505
  51. ORENITRAM [Suspect]
     Active Substance: TREPROSTINIL
     Dosage: 0.125 MILLIGRAM, BID, (TWO PILLS A DAY DOSE DECREASE)
     Dates: start: 202505, end: 202505
  52. ORENITRAM [Suspect]
     Active Substance: TREPROSTINIL
     Dosage: 0.125 MILLIGRAM, BID, (TWO PILLS A DAY DOSE DECREASE)
     Dates: start: 202505, end: 202505
  53. ORENITRAM [Suspect]
     Active Substance: TREPROSTINIL
     Dosage: 0.125 MILLIGRAM, TID, (THREE TIMES A DAY)
     Dates: start: 202505
  54. ORENITRAM [Suspect]
     Active Substance: TREPROSTINIL
     Dosage: 0.125 MILLIGRAM, TID, (THREE TIMES A DAY)
     Dates: start: 202505
  55. ORENITRAM [Suspect]
     Active Substance: TREPROSTINIL
     Dosage: 0.125 MILLIGRAM, TID, (THREE TIMES A DAY)
     Route: 048
     Dates: start: 202505
  56. ORENITRAM [Suspect]
     Active Substance: TREPROSTINIL
     Dosage: 0.125 MILLIGRAM, TID, (THREE TIMES A DAY)
     Route: 048
     Dates: start: 202505
  57. OPSUMIT [Concomitant]
     Active Substance: MACITENTAN
  58. OPSUMIT [Concomitant]
     Active Substance: MACITENTAN
     Route: 065
  59. OPSUMIT [Concomitant]
     Active Substance: MACITENTAN
     Route: 065
  60. OPSUMIT [Concomitant]
     Active Substance: MACITENTAN
  61. VANTIN [Concomitant]
     Active Substance: CEFPODOXIME PROXETIL
  62. VANTIN [Concomitant]
     Active Substance: CEFPODOXIME PROXETIL
     Route: 065
  63. VANTIN [Concomitant]
     Active Substance: CEFPODOXIME PROXETIL
     Route: 065
  64. VANTIN [Concomitant]
     Active Substance: CEFPODOXIME PROXETIL
  65. DEMADEX [Concomitant]
     Active Substance: TORSEMIDE
  66. DEMADEX [Concomitant]
     Active Substance: TORSEMIDE
     Route: 065
  67. DEMADEX [Concomitant]
     Active Substance: TORSEMIDE
     Route: 065
  68. DEMADEX [Concomitant]
     Active Substance: TORSEMIDE
  69. PLAVIX [Concomitant]
     Active Substance: CLOPIDOGREL BISULFATE
  70. PLAVIX [Concomitant]
     Active Substance: CLOPIDOGREL BISULFATE
     Route: 065
  71. PLAVIX [Concomitant]
     Active Substance: CLOPIDOGREL BISULFATE
     Route: 065
  72. PLAVIX [Concomitant]
     Active Substance: CLOPIDOGREL BISULFATE
  73. NORVASC [Concomitant]
     Active Substance: AMLODIPINE BESYLATE
  74. NORVASC [Concomitant]
     Active Substance: AMLODIPINE BESYLATE
     Route: 065
  75. NORVASC [Concomitant]
     Active Substance: AMLODIPINE BESYLATE
     Route: 065
  76. NORVASC [Concomitant]
     Active Substance: AMLODIPINE BESYLATE
  77. CLARITIN [Concomitant]
     Active Substance: LORATADINE
  78. CLARITIN [Concomitant]
     Active Substance: LORATADINE
     Route: 065
  79. CLARITIN [Concomitant]
     Active Substance: LORATADINE
     Route: 065
  80. CLARITIN [Concomitant]
     Active Substance: LORATADINE
  81. LUBRIFRESH P.M. [Concomitant]
     Active Substance: MINERAL OIL\PETROLATUM
  82. LUBRIFRESH P.M. [Concomitant]
     Active Substance: MINERAL OIL\PETROLATUM
     Route: 065
  83. LUBRIFRESH P.M. [Concomitant]
     Active Substance: MINERAL OIL\PETROLATUM
     Route: 065
  84. LUBRIFRESH P.M. [Concomitant]
     Active Substance: MINERAL OIL\PETROLATUM
  85. BACTROBAN [Concomitant]
     Active Substance: MUPIROCIN CALCIUM
  86. BACTROBAN [Concomitant]
     Active Substance: MUPIROCIN CALCIUM
     Route: 065
  87. BACTROBAN [Concomitant]
     Active Substance: MUPIROCIN CALCIUM
     Route: 065
  88. BACTROBAN [Concomitant]
     Active Substance: MUPIROCIN CALCIUM
  89. COLACE [Concomitant]
     Active Substance: DOCUSATE SODIUM
  90. COLACE [Concomitant]
     Active Substance: DOCUSATE SODIUM
     Route: 065
  91. COLACE [Concomitant]
     Active Substance: DOCUSATE SODIUM
     Route: 065
  92. COLACE [Concomitant]
     Active Substance: DOCUSATE SODIUM
  93. CROMOLYN SODIUM [Concomitant]
     Active Substance: CROMOLYN SODIUM
  94. CROMOLYN SODIUM [Concomitant]
     Active Substance: CROMOLYN SODIUM
     Route: 065
  95. CROMOLYN SODIUM [Concomitant]
     Active Substance: CROMOLYN SODIUM
     Route: 065
  96. CROMOLYN SODIUM [Concomitant]
     Active Substance: CROMOLYN SODIUM
  97. MICARDIS [Concomitant]
     Active Substance: TELMISARTAN
  98. MICARDIS [Concomitant]
     Active Substance: TELMISARTAN
     Route: 065
  99. MICARDIS [Concomitant]
     Active Substance: TELMISARTAN
     Route: 065
  100. MICARDIS [Concomitant]
     Active Substance: TELMISARTAN
  101. DELTASONE [Concomitant]
     Active Substance: PREDNISONE
  102. DELTASONE [Concomitant]
     Active Substance: PREDNISONE
     Route: 065
  103. DELTASONE [Concomitant]
     Active Substance: PREDNISONE
     Route: 065
  104. DELTASONE [Concomitant]
     Active Substance: PREDNISONE
  105. PROVENTIL [Concomitant]
     Active Substance: ALBUTEROL
  106. PROVENTIL [Concomitant]
     Active Substance: ALBUTEROL
     Route: 065
  107. PROVENTIL [Concomitant]
     Active Substance: ALBUTEROL
     Route: 065
  108. PROVENTIL [Concomitant]
     Active Substance: ALBUTEROL
  109. VENTOLIN [Concomitant]
     Active Substance: ALBUTEROL SULFATE
  110. VENTOLIN [Concomitant]
     Active Substance: ALBUTEROL SULFATE
     Route: 065
  111. VENTOLIN [Concomitant]
     Active Substance: ALBUTEROL SULFATE
     Route: 065
  112. VENTOLIN [Concomitant]
     Active Substance: ALBUTEROL SULFATE
  113. PROAIR HFA [Concomitant]
     Active Substance: ALBUTEROL SULFATE
  114. PROAIR HFA [Concomitant]
     Active Substance: ALBUTEROL SULFATE
     Route: 065
  115. PROAIR HFA [Concomitant]
     Active Substance: ALBUTEROL SULFATE
     Route: 065
  116. PROAIR HFA [Concomitant]
     Active Substance: ALBUTEROL SULFATE
  117. ASPIRIN [Concomitant]
     Active Substance: ASPIRIN
  118. ASPIRIN [Concomitant]
     Active Substance: ASPIRIN
     Route: 065
  119. ASPIRIN [Concomitant]
     Active Substance: ASPIRIN
     Route: 065
  120. ASPIRIN [Concomitant]
     Active Substance: ASPIRIN
  121. IMURAN [Concomitant]
     Active Substance: AZATHIOPRINE
  122. IMURAN [Concomitant]
     Active Substance: AZATHIOPRINE
     Route: 065
  123. IMURAN [Concomitant]
     Active Substance: AZATHIOPRINE
     Route: 065
  124. IMURAN [Concomitant]
     Active Substance: AZATHIOPRINE
  125. PREVACID [Concomitant]
     Active Substance: LANSOPRAZOLE
  126. PREVACID [Concomitant]
     Active Substance: LANSOPRAZOLE
     Route: 065
  127. PREVACID [Concomitant]
     Active Substance: LANSOPRAZOLE
     Route: 065
  128. PREVACID [Concomitant]
     Active Substance: LANSOPRAZOLE
  129. KEFLEX [Concomitant]
     Active Substance: CEPHALEXIN
  130. KEFLEX [Concomitant]
     Active Substance: CEPHALEXIN
     Route: 065
  131. KEFLEX [Concomitant]
     Active Substance: CEPHALEXIN
     Route: 065
  132. KEFLEX [Concomitant]
     Active Substance: CEPHALEXIN
  133. ROCEPHIN [Concomitant]
     Active Substance: CEFTRIAXONE SODIUM
  134. ROCEPHIN [Concomitant]
     Active Substance: CEFTRIAXONE SODIUM
     Route: 065
  135. ROCEPHIN [Concomitant]
     Active Substance: CEFTRIAXONE SODIUM
     Route: 065
  136. ROCEPHIN [Concomitant]
     Active Substance: CEFTRIAXONE SODIUM
  137. CEFPODOXIME [Concomitant]
     Active Substance: CEFPODOXIME
  138. CEFPODOXIME [Concomitant]
     Active Substance: CEFPODOXIME
     Route: 065
  139. CEFPODOXIME [Concomitant]
     Active Substance: CEFPODOXIME
     Route: 065
  140. CEFPODOXIME [Concomitant]
     Active Substance: CEFPODOXIME

REACTIONS (10)
  - Fluid retention [Unknown]
  - Urinary tract infection [Not Recovered/Not Resolved]
  - Blood pressure decreased [Recovered/Resolved]
  - Peripheral swelling [Recovered/Resolved]
  - Carotid arteriosclerosis [Unknown]
  - Feeling abnormal [Not Recovered/Not Resolved]
  - Dizziness [Unknown]
  - Fatigue [Unknown]
  - Malaise [Unknown]
  - Inappropriate schedule of product administration [Unknown]

NARRATIVE: CASE EVENT DATE: 20250501
